FAERS Safety Report 20978932 (Version 2)
Quarter: 2022Q3

REPORT INFORMATION
  Report Type: Spontaneous
  Country: JP (occurrence: JP)
  Receive Date: 20220619
  Receipt Date: 20220905
  Transmission Date: 20221027
  Serious: Yes (Death, Hospitalization)
  Sender: FDA-Public Use
  Company Number: JP-CHUGAI-2022021321

PATIENT
  Age: 6 Decade
  Sex: Female

DRUGS (2)
  1. TECENTRIQ [Suspect]
     Active Substance: ATEZOLIZUMAB
     Indication: Triple negative breast cancer
     Dosage: 840 MILLIGRAM, ONCE/2WEEKS
     Route: 041
     Dates: start: 2021, end: 20220303
  2. PACLITAXEL [Concomitant]
     Active Substance: PACLITAXEL
     Indication: Triple negative breast cancer
     Dosage: UNK
     Route: 041

REACTIONS (3)
  - Adrenal disorder [Fatal]
  - Myocarditis [Fatal]
  - Sinus arrhythmia [Fatal]
